FAERS Safety Report 6674395-2 (Version None)
Quarter: 2010Q2

REPORT INFORMATION
  Report Type: 
  Country: None (occurrence: None)
  Receive Date: 20100409
  Receipt Date: 20100406
  Transmission Date: 20101027
  Serious: Yes (Hospitalization)
  Sender: FDA-Public Use
  Company Number: GB-PFIZER INC-2008063412

PATIENT
  Age: 69 Year
  Sex: Male
  Weight: 96 kg

DRUGS (15)
  1. FLUOROURACIL [Suspect]
     Indication: COLORECTAL CANCER
     Route: 048
     Dates: start: 20080717, end: 20080724
  2. BLINDED *NO SUBJECT DRUG [Suspect]
     Indication: COLORECTAL CANCER
     Route: 048
     Dates: start: 20080717, end: 20080724
  3. BLINDED *PLACEBO [Suspect]
     Indication: COLORECTAL CANCER
     Route: 048
     Dates: start: 20080717, end: 20080724
  4. FLUOROURACIL [Suspect]
     Route: 048
     Dates: start: 20080717, end: 20080724
  5. BLINDED SUNITINIB MALATE [Suspect]
     Indication: COLORECTAL CANCER
     Route: 048
     Dates: start: 20080717, end: 20080724
  6. IRINOTECAN HCL [Suspect]
     Indication: COLORECTAL CANCER
     Dosage: 410 MG, EVERY 2 WEEKS
     Dates: start: 20080717, end: 20080717
  7. FLUOROURACIL [Suspect]
     Indication: COLORECTAL CANCER
     Dosage: 925 MG, EVERY 2 WEEKS
     Dates: start: 20080718, end: 20080720
  8. FLUOROURACIL [Suspect]
     Dosage: 5500 MG, EVERY 2 WEEKS
     Dates: start: 20080718, end: 20080720
  9. CALCIUM FOLINATE [Suspect]
     Indication: COLORECTAL CANCER
     Dosage: 450 MG, EVERY 2 WEEKS
     Dates: start: 20080717, end: 20080717
  10. ATENOLOL [Suspect]
     Indication: HYPERTENSION
     Dosage: 100 MG, 1X/DAY
     Dates: start: 20060101
  11. DOXAZOSIN [Suspect]
     Indication: HYPERTENSION
     Dosage: 4 MG, 2X/DAY
     Dates: start: 20060101
  12. PERINDOPRIL ERBUMINE [Suspect]
     Indication: HYPERTENSION
     Dosage: 8 MG, 1X/DAY
     Dates: start: 20060101
  13. DEXAMETHASONE [Concomitant]
     Dosage: 4 MG, 1X/DAY
     Dates: start: 20080609
  14. DOCUSATE [Concomitant]
     Dosage: 100 MG, 2X/DAY
     Dates: start: 20060101
  15. LACTULOSE [Concomitant]
     Dosage: 30 ML, 2X/DAY
     Dates: start: 20060619

REACTIONS (2)
  - CHEST PAIN [None]
  - ELECTROCARDIOGRAM ST SEGMENT DEPRESSION [None]
